FAERS Safety Report 6882276-4 (Version None)
Quarter: 2010Q3

REPORT INFORMATION
  Report Type: 
  Country: None (occurrence: None)
  Receive Date: 20100729
  Receipt Date: 20100722
  Transmission Date: 20110219
  Serious: Yes (Other)
  Sender: FDA-Public Use
  Company Number: US-SANOFI-AVENTIS-2010SA036473

PATIENT
  Age: 79 Year
  Sex: Male
  Weight: 94.5 kg

DRUGS (20)
  1. MULTAQ [Suspect]
     Indication: ATRIAL FIBRILLATION
     Route: 048
     Dates: start: 20100305, end: 20100408
  2. LASIX [Concomitant]
     Route: 065
  3. NITROSTAT [Concomitant]
  4. PLAVIX [Concomitant]
     Route: 048
  5. VYTORIN [Concomitant]
     Dosage: 10/40 MG
  6. NOVOLIN N [Concomitant]
  7. NOVOLIN R [Concomitant]
  8. MULTI-VITAMINS [Concomitant]
  9. PROSCAR [Concomitant]
  10. UROXATRAL [Concomitant]
  11. ZOLOFT [Concomitant]
  12. ACTOS [Concomitant]
  13. ASPIRIN [Concomitant]
  14. FISH OIL [Concomitant]
  15. COZAAR [Concomitant]
  16. GLUCOSAMINE [Concomitant]
  17. DUONEB [Concomitant]
  18. ZAROXOLYN [Concomitant]
  19. MOBIC [Concomitant]
  20. LOPRESSOR [Concomitant]

REACTIONS (8)
  - BRAIN NATRIURETIC PEPTIDE INCREASED [None]
  - BRONCHITIS [None]
  - CARDIAC FAILURE [None]
  - COUGH [None]
  - DYSPNOEA [None]
  - OEDEMA [None]
  - TOOTH ABSCESS [None]
  - WEIGHT INCREASED [None]
